FAERS Safety Report 10921186 (Version 3)
Quarter: 2016Q3

REPORT INFORMATION
  Report Type: Report from Study
  Country: CA (occurrence: CA)
  Receive Date: 20150317
  Receipt Date: 20160907
  Transmission Date: 20161109
  Serious: Yes (Other)
  Sender: FDA-Public Use
  Company Number: CA-ABBVIE-14K-028-1250076-00

PATIENT
  Age: 6 Year
  Sex: Male

DRUGS (5)
  1. HUMIRA [Suspect]
     Active Substance: ADALIMUMAB
     Indication: UVEITIS
     Route: 058
     Dates: start: 20140418, end: 20150220
  2. UNKNOWN EYE DROPS [Concomitant]
     Active Substance: UNSPECIFIED INGREDIENT
     Indication: CATARACT
  3. METHOTREXATE. [Concomitant]
     Active Substance: METHOTREXATE
     Indication: CATARACT
  4. FOLIC ACID. [Concomitant]
     Active Substance: FOLIC ACID
     Indication: UVEITIS
  5. HUMIRA [Suspect]
     Active Substance: ADALIMUMAB
     Route: 058
     Dates: start: 20150315

REACTIONS (3)
  - Blindness unilateral [Not Recovered/Not Resolved]
  - Therapeutic response unexpected [Recovering/Resolving]
  - Intraocular pressure fluctuation [Recovering/Resolving]

NARRATIVE: CASE EVENT DATE: 20150309
